FAERS Safety Report 5684234-4 (Version None)
Quarter: 2008Q1

REPORT INFORMATION
  Report Type: 
  Country: None (occurrence: None)
  Receive Date: 20080328
  Receipt Date: 20071206
  Transmission Date: 20080703
  Serious: No
  Sender: FDA-Public Use
  Company Number: US-AMGEN-KDL255778

PATIENT
  Sex: Female

DRUGS (4)
  1. NEUPOGEN [Suspect]
     Indication: CHEMOTHERAPY
     Dates: start: 20070823, end: 20071014
  2. NEULASTA [Suspect]
     Indication: CHEMOTHERAPY
     Dates: start: 20070627, end: 20070829
  3. TAXOL [Concomitant]
  4. CISPLATIN [Concomitant]

REACTIONS (5)
  - DIZZINESS [None]
  - HYPERSENSITIVITY [None]
  - MALAISE [None]
  - TACHYCARDIA [None]
  - URTICARIA [None]
